FAERS Safety Report 6247227-4 (Version None)
Quarter: 2009Q2

REPORT INFORMATION
  Report Type: 
  Country: None (occurrence: None)
  Receive Date: 20090626
  Receipt Date: 20090616
  Transmission Date: 20091009
  Serious: Yes (Hospitalization)
  Sender: FDA-Public Use
  Company Number: FR-PFIZER INC-2009227345

PATIENT
  Age: 65 Year

DRUGS (2)
  1. ZOLOFT [Suspect]
     Indication: DEPRESSION
     Dosage: 50 MG, 1X/DAY
     Route: 048
  2. MEDIATENSYL [Concomitant]
     Dosage: 1 DF, 2X/DAY (IN THE MORNING AND IN THE EVENING)

REACTIONS (1)
  - TONIC CONVULSION [None]
